FAERS Safety Report 14673519 (Version 2)
Quarter: 2018Q2

REPORT INFORMATION
  Report Type: Spontaneous
  Country: GB (occurrence: GB)
  Receive Date: 20180323
  Receipt Date: 20180402
  Transmission Date: 20180711
  Serious: Yes (Other)
  Sender: FDA-Public Use
  Company Number: GB-GLENMARK PHARMACEUTICALS-2018GMK033607

PATIENT
  Age: 80 Year
  Sex: Male

DRUGS (2)
  1. LIDOCAINE. [Suspect]
     Active Substance: LIDOCAINE
     Indication: SUNCT SYNDROME
     Dosage: 1- 4 MG/MIN INFUSION
     Route: 042
  2. LIDOCAINE. [Suspect]
     Active Substance: LIDOCAINE
     Dosage: 5 % PATCH FOR 12 HOURS DAILY
     Route: 065

REACTIONS (2)
  - Confusional state [Unknown]
  - Sinus tachycardia [Unknown]
